FAERS Safety Report 6141885-0 (Version None)
Quarter: 2009Q2

REPORT INFORMATION
  Report Type: 
  Country: None (occurrence: None)
  Receive Date: 20090401
  Receipt Date: 20090401
  Transmission Date: 20091009
  Serious: Yes (Life-Threatening, Hospitalization, Disabling)
  Sender: FDA-Public Use
  Company Number: None

PATIENT
  Age: 34 Year
  Sex: Female
  Weight: 56.6996 kg

DRUGS (2)
  1. YAZ [Suspect]
     Indication: ADNEXA UTERI PAIN
     Dosage: 28 TABLETS 1 DAILY PO
     Route: 048
     Dates: start: 20090220, end: 20090313
  2. YAZ [Suspect]
     Indication: OVARIAN CYST
     Dosage: 28 TABLETS 1 DAILY PO
     Route: 048
     Dates: start: 20090220, end: 20090313

REACTIONS (2)
  - PULMONARY EMBOLISM [None]
  - PULMONARY INFARCTION [None]
